FAERS Safety Report 9576119 (Version 1)
Quarter: 2013Q4

REPORT INFORMATION
  Report Type: Spontaneous
  Country: US (occurrence: US)
  Receive Date: 20131001
  Receipt Date: 20131001
  Transmission Date: 20140711
  Serious: No
  Sender: FDA-Public Use
  Company Number: US-AMGEN-USASP2013001198

PATIENT
  Sex: Female
  Weight: 75.74 kg

DRUGS (8)
  1. ENBREL [Suspect]
     Indication: RHEUMATOID ARTHRITIS
     Dosage: 25 MG, 2 TIMES/WK
     Route: 058
  2. HUMIRA [Concomitant]
     Dosage: 40 MG, UNK
     Dates: start: 201211
  3. LISINOPRIL [Concomitant]
     Dosage: 10 MG, UNK
  4. METHOTREXATE [Concomitant]
     Dosage: 1 G, UNK
  5. LEVOTHYROXIN [Concomitant]
     Dosage: 150 MUG, UNK
  6. FOLIC ACID [Concomitant]
     Dosage: UNK
  7. VITAMIN D                          /00107901/ [Concomitant]
     Dosage: 400 UNIT, UNK
  8. VITAMIN B12                        /00056201/ [Concomitant]
     Dosage: 500 MUG, UNK

REACTIONS (1)
  - Therapeutic response decreased [Unknown]
